FAERS Safety Report 8833603 (Version 1)
Quarter: 2012Q4

REPORT INFORMATION
  Report Type: Report from Study
  Country: US (occurrence: US)
  Receive Date: 20121010
  Receipt Date: 20121010
  Transmission Date: 20130627
  Serious: Yes (Hospitalization)
  Sender: FDA-Public Use
  Company Number: US-ROCHE-1140175

PATIENT
  Age: 79 Year
  Sex: Female
  Weight: 45 kg

DRUGS (3)
  1. AVASTIN [Suspect]
     Indication: MALIGNANT PERITONEAL NEOPLASM
     Dosage: Cycle1-6:over 30-90 min on day 1, beginning with cycle2, cylce7-22:over 30-90 min on day1, last date
     Route: 042
     Dates: start: 20101104
  2. PACLITAXEL [Suspect]
     Indication: MALIGNANT PERITONEAL NEOPLASM
     Dosage: Cycles = 1-6:over 1 hr on days 1, 8 + 15
     Route: 042
     Dates: start: 20101104
  3. CARBOPLATIN [Suspect]
     Indication: MALIGNANT PERITONEAL NEOPLASM
     Dosage: AUC 6 IP on day 1
     Route: 065
     Dates: start: 20101104

REACTIONS (1)
  - Tremor [Unknown]
